FAERS Safety Report 25863395 (Version 1)
Quarter: 2025Q3

REPORT INFORMATION
  Report Type: Spontaneous
  Country: GB (occurrence: GB)
  Receive Date: 20250930
  Receipt Date: 20250930
  Transmission Date: 20251021
  Serious: Yes (Other)
  Sender: RANBAXY
  Company Number: GB-RP-046961

PATIENT
  Age: 6 Decade
  Sex: Male

DRUGS (2)
  1. WARFARIN [Suspect]
     Active Substance: WARFARIN
     Indication: Anticoagulant therapy
     Dosage: 2 MILLIGRAM, QD
     Route: 065
  2. WARFARIN [Suspect]
     Active Substance: WARFARIN
     Dosage: 5 MILLIGRAM, DAILY
     Route: 065

REACTIONS (3)
  - Haematoma [Recovering/Resolving]
  - Obstructive airways disorder [Recovered/Resolved]
  - International normalised ratio increased [Unknown]
